FAERS Safety Report 6427442-7 (Version None)
Quarter: 2009Q4

REPORT INFORMATION
  Report Type: 
  Country: None (occurrence: None)
  Receive Date: 20091104
  Receipt Date: 20091023
  Transmission Date: 20100525
  Serious: Yes (Death, Other)
  Sender: FDA-Public Use
  Company Number: AU-PFIZER INC-2009270063

PATIENT
  Age: 31 Year
  Sex: Male

DRUGS (3)
  1. XANAX [Suspect]
     Dosage: 8-10 PER DAY
  2. ALCOHOL [Concomitant]
  3. OLANZAPINE [Concomitant]
     Dosage: 10 MG, UNK

REACTIONS (13)
  - AGGRESSION [None]
  - DEATH [None]
  - DEPRESSED MOOD [None]
  - DRUG ABUSE [None]
  - DRUG TOXICITY [None]
  - FRUSTRATION [None]
  - HOMICIDAL IDEATION [None]
  - HUMAN BITE [None]
  - INTENTIONAL SELF-INJURY [None]
  - LOSS OF CONSCIOUSNESS [None]
  - OVERDOSE [None]
  - PARANOIA [None]
  - SUICIDAL IDEATION [None]
